FAERS Safety Report 6289856-8 (Version None)
Quarter: 2009Q3

REPORT INFORMATION
  Report Type: 
  Country: None (occurrence: None)
  Receive Date: 20090729
  Receipt Date: 20090729
  Transmission Date: 20100115
  Serious: No
  Sender: FDA-Public Use
  Company Number: None

PATIENT
  Sex: Female
  Weight: 41.2773 kg

DRUGS (2)
  1. HYDROCHLOROTHIAZIDE [Suspect]
     Indication: OEDEMA PERIPHERAL
     Dosage: 25 MG ONCE DAILY
     Dates: start: 20090622, end: 20090723
  2. CITALOPRAM 10 MG [Suspect]
     Indication: DEPRESSION
     Dosage: 10 MG ONCE DAILY
     Dates: start: 20090311, end: 20090723

REACTIONS (1)
  - NIGHT SWEATS [None]
